FAERS Safety Report 5455100-4 (Version None)
Quarter: 2007Q3

REPORT INFORMATION
  Report Type: 
  Country: None (occurrence: None)
  Receive Date: 20070913
  Receipt Date: 20070913
  Transmission Date: 20080115
  Serious: Yes (Life-Threatening, Hospitalization, Disabling)
  Sender: FDA-Public Use
  Company Number: None

PATIENT
  Age: 37 Year
  Sex: Female
  Weight: 76.2043 kg

DRUGS (1)
  1. NUVARING [Suspect]
     Indication: PREGNANCY
     Dosage: IN FOR 5 WEEKS OUT FOR ONE
     Dates: start: 20050905, end: 20070815

REACTIONS (1)
  - DEEP VEIN THROMBOSIS [None]
